FAERS Safety Report 7894107-4 (Version None)
Quarter: 2011Q4

REPORT INFORMATION
  Report Type: 
  Country: None (occurrence: None)
  Receive Date: 20111104
  Receipt Date: 20111031
  Transmission Date: 20120403
  Serious: Yes (Hospitalization)
  Sender: FDA-Public Use
  Company Number: US-ROXANE LABORATORIES, INC.-2011-RO-01565RO

PATIENT
  Age: 78 Year
  Sex: Male

DRUGS (9)
  1. NAPROXEN SODIUM [Suspect]
     Indication: ABDOMINAL PAIN UPPER
     Dosage: 440 MG
  2. FUROSEMIDE [Suspect]
     Dosage: 20 MG
  3. WARFARIN SODIUM [Suspect]
     Indication: CEREBROVASCULAR ACCIDENT PROPHYLAXIS
     Dosage: 5 MG
  4. LISINOPRIL [Suspect]
     Dosage: 20 MG
  5. DABIGATRAN ETEXILATE [Suspect]
     Indication: ATRIAL FIBRILLATION
     Dosage: 300 MG
  6. METOPROLOL SUCCINATE EXTENDED RELEASE [Suspect]
     Dosage: 200 MG
  7. FUROSEMIDE [Suspect]
     Dosage: 40 MG
  8. ENOXAPARIN [Suspect]
     Indication: CEREBROVASCULAR ACCIDENT PROPHYLAXIS
     Dosage: 40 MG
  9. ASPIRIN [Suspect]
     Indication: CEREBROVASCULAR ACCIDENT PROPHYLAXIS
     Dosage: 81 MG

REACTIONS (4)
  - HYPOTENSION [None]
  - TACHYCARDIA [None]
  - TACHYPNOEA [None]
  - GASTROINTESTINAL HAEMORRHAGE [None]
